FAERS Safety Report 6425573-9 (Version None)
Quarter: 2009Q4

REPORT INFORMATION
  Report Type: 
  Country: None (occurrence: None)
  Receive Date: 20091103
  Receipt Date: 20091026
  Transmission Date: 20100525
  Serious: Yes (Hospitalization)
  Sender: FDA-Public Use
  Company Number: US-ELI_LILLY_AND_COMPANY-US200910007251

PATIENT
  Age: 54 Year
  Sex: Male

DRUGS (2)
  1. ZYPREXA [Suspect]
     Indication: BIPOLAR DISORDER
     Dosage: 30 MG, UNK
  2. ZYPREXA [Suspect]
     Dosage: 2.5 MG, UNK

REACTIONS (3)
  - BIPOLAR DISORDER [None]
  - NO THERAPEUTIC RESPONSE [None]
  - OVERDOSE [None]
